FAERS Safety Report 9107463 (Version 1)
Quarter: 2013Q1

REPORT INFORMATION
  Report Type: Spontaneous
  Country: US (occurrence: US)
  Receive Date: 20130221
  Receipt Date: 20130221
  Transmission Date: 20140127
  Serious: Yes (Other)
  Sender: FDA-Public Use
  Company Number: US-PFIZER INC-2012113721

PATIENT
  Age: 43 Year
  Sex: Female
  Weight: 64.85 kg

DRUGS (4)
  1. LYRICA [Suspect]
     Indication: PAIN
     Dosage: 75 MG, 1X/DAY
     Route: 048
     Dates: start: 201202
  2. LYRICA [Suspect]
     Indication: BACK DISORDER
  3. LYRICA [Suspect]
     Indication: NEURALGIA
  4. LYRICA [Suspect]
     Indication: FIBROMYALGIA

REACTIONS (3)
  - Skin discolouration [Unknown]
  - Local swelling [Recovering/Resolving]
  - Weight increased [Unknown]
